FAERS Safety Report 5951756 (Version 3)
Quarter: 2018Q4

REPORT INFORMATION
  Report Type: Spontaneous
  Country: US (occurrence: US)
  Receive Date: 20051215
  Receipt Date: 20181029
  Transmission Date: 20190205
  Serious: Yes (Hospitalization)
  Sender: FDA-Public Use
  Company Number: GXKR2005US02075

PATIENT
  Age: 16 Year
  Sex: Male

DRUGS (3)
  1. METHYLPHENIDATE. [Interacting]
     Active Substance: METHYLPHENIDATE
     Indication: ATTENTION DEFICIT/HYPERACTIVITY DISORDER
     Dosage: 30 MG, BID
     Route: 065
  2. ERYTROMYCINE [Interacting]
     Active Substance: ERYTHROMYCIN
     Indication: PRODUCT USED FOR UNKNOWN INDICATION
     Dosage: 999 MG, QD
     Route: 065
  3. BUPROPION. [Suspect]
     Active Substance: BUPROPION
     Indication: DEPRESSION
     Dosage: 100 MG, BID
     Route: 065

REACTIONS (14)
  - Drug interaction [Recovered/Resolved]
  - Chest pain [Recovered/Resolved]
  - Electrocardiogram ST segment elevation [Recovered/Resolved]
  - Troponin increased [Unknown]
  - Electrocardiogram ST-T segment abnormal [Recovered/Resolved]
  - Blood creatine phosphokinase increased [Unknown]
  - Electrocardiogram abnormal [Recovered/Resolved]
  - Red blood cell sedimentation rate increased [Recovered/Resolved]
  - Blood creatine phosphokinase MB increased [Recovered/Resolved]
  - Myocardial necrosis marker increased [Recovered/Resolved]
  - Heart rate increased [Recovered/Resolved]
  - Acute myocardial infarction [Recovered/Resolved]
  - Electrocardiogram ST segment depression [Recovered/Resolved]
  - C-reactive protein increased [Unknown]
